FAERS Safety Report 4550069-9 (Version None)
Quarter: 2005Q1

REPORT INFORMATION
  Report Type: 
  Country: None (occurrence: None)
  Receive Date: 20050107
  Receipt Date: 20041229
  Transmission Date: 20050727
  Serious: Yes (Hospitalization)
  Sender: FDA-Public Use
  Company Number: 2004UW26263

PATIENT
  Age: 76 Year
  Sex: Female
  Weight: 63.9572 kg

DRUGS (10)
  1. IRESSA [Suspect]
     Indication: OESOPHAGEAL CARCINOMA
     Dosage: 250 MG QD PO
     Route: 048
     Dates: start: 20041122
  2. CISPLATIN [Suspect]
     Indication: OESOPHAGEAL CARCINOMA
     Dosage: 58 MG QD IV
     Route: 042
     Dates: start: 20041213, end: 20041220
  3. CISPLATIN [Suspect]
     Indication: OESOPHAGEAL CARCINOMA
     Dosage: 38 MG QD IV
     Route: 042
     Dates: start: 20041220, end: 20041220
  4. IRINOTECAN [Suspect]
     Indication: OESOPHAGEAL CARCINOMA
     Dosage: 108 MG QD IV
     Route: 042
     Dates: start: 20041213, end: 20041220
  5. XANAX [Concomitant]
  6. ROBITUSSIN [Concomitant]
  7. SEPTRA [Concomitant]
  8. FLUCONAZOLE [Concomitant]
  9. IMODIUM [Concomitant]
  10. LORAZEPAM [Concomitant]

REACTIONS (7)
  - DIARRHOEA [None]
  - DRUG INEFFECTIVE [None]
  - FAILURE TO THRIVE [None]
  - FATIGUE [None]
  - HYPONATRAEMIA [None]
  - NEUTROPENIA [None]
  - TREMOR [None]
